FAERS Safety Report 9773619 (Version 1)
Quarter: 2013Q4

REPORT INFORMATION
  Report Type: Spontaneous
  Country: US (occurrence: US)
  Receive Date: 20131219
  Receipt Date: 20131219
  Transmission Date: 20140711
  Serious: No
  Sender: FDA-Public Use
  Company Number: US-MYLANLABS-2013S1009066

PATIENT
  Age: 69 Year
  Sex: Female

DRUGS (1)
  1. FLURAZEPAM HYDROCHLORIDE CAPSULES, USP [Suspect]
     Indication: INSOMNIA
     Route: 048
     Dates: start: 201302, end: 201304

REACTIONS (1)
  - Somnolence [Recovered/Resolved]
